FAERS Safety Report 16392965 (Version 3)
Quarter: 2020Q3

REPORT INFORMATION
  Report Type: Spontaneous
  Country: CA (occurrence: CA)
  Receive Date: 20190605
  Receipt Date: 20200716
  Transmission Date: 20201102
  Serious: Yes (Other)
  Sender: FDA-Public Use
  Company Number: CA-AUROBINDO-AUR-APL-2019-030680

PATIENT
  Age: 56 Year
  Sex: Female

DRUGS (21)
  1. SANDOSTATIN [Suspect]
     Active Substance: OCTREOTIDE ACETATE
     Dosage: 30 MILLIGRAM
     Route: 065
  2. SUNITINIB [Suspect]
     Active Substance: SUNITINIB
     Indication: PRODUCT USED FOR UNKNOWN INDICATION
     Dosage: UNK
     Route: 065
  3. HYDROMORPHONE [Concomitant]
     Active Substance: HYDROMORPHONE
     Indication: PRODUCT USED FOR UNKNOWN INDICATION
     Dosage: 1 MILLIGRAM
     Route: 048
  4. HYDROCHLOROTHIAZIDE;IRBESARTAN [Concomitant]
     Active Substance: HYDROCHLOROTHIAZIDE\IRBESARTAN
     Indication: PRODUCT USED FOR UNKNOWN INDICATION
     Dosage: UNK
     Route: 065
  5. SANDOSTATIN [Suspect]
     Active Substance: OCTREOTIDE ACETATE
     Indication: VIPOMA
     Dosage: 100 MICROGRAM, 3 TIMES A DAY
     Route: 058
  6. ACETAMINOPHEN. [Concomitant]
     Active Substance: ACETAMINOPHEN
     Indication: PRODUCT USED FOR UNKNOWN INDICATION
     Dosage: 500 MILLIGRAM
     Route: 065
  7. BISOPROLOL [Suspect]
     Active Substance: BISOPROLOL
     Dosage: 5 MILLIGRAM
     Route: 065
  8. BISOPROLOL [Suspect]
     Active Substance: BISOPROLOL
     Indication: PRODUCT USED FOR UNKNOWN INDICATION
     Dosage: 2.5 MILLIGRAM, ONCE A DAY
     Route: 048
  9. PANTOLOC [Concomitant]
     Active Substance: PANTOPRAZOLE SODIUM
     Indication: PRODUCT USED FOR UNKNOWN INDICATION
     Dosage: 40 MILLIGRAM, ONCE A DAY
     Route: 048
  10. DEXAMETHASONE. [Suspect]
     Active Substance: DEXAMETHASONE
     Indication: PRODUCT USED FOR UNKNOWN INDICATION
     Dosage: 4 MILLIGRAM, 3 TIMES A DAY
     Route: 048
  11. JANUVIA [Concomitant]
     Active Substance: SITAGLIPTIN PHOSPHATE
     Indication: PRODUCT USED FOR UNKNOWN INDICATION
     Dosage: 100 MILLIGRAM
     Route: 065
  12. NAPROXEN. [Concomitant]
     Active Substance: NAPROXEN
     Indication: PRODUCT USED FOR UNKNOWN INDICATION
     Dosage: 500 MILLIGRAM
     Route: 065
  13. METFORMIN [Suspect]
     Active Substance: METFORMIN HYDROCHLORIDE
     Indication: PRODUCT USED FOR UNKNOWN INDICATION
     Dosage: 500 MILLIGRAM
     Route: 065
  14. PENICILLIN VK [Concomitant]
     Active Substance: PENICILLIN V POTASSIUM
     Indication: PRODUCT USED FOR UNKNOWN INDICATION
     Dosage: 300 MILLIGRAM, ONCE A DAY
     Route: 048
  15. HYDROCHLOROTHIAZIDE. [Suspect]
     Active Substance: HYDROCHLOROTHIAZIDE
     Indication: PRODUCT USED FOR UNKNOWN INDICATION
     Dosage: UNK
     Route: 065
  16. REPAGLINIDE TABLET [Suspect]
     Active Substance: REPAGLINIDE
     Indication: PRODUCT USED FOR UNKNOWN INDICATION
     Dosage: 2 MILLIGRAM
     Route: 065
  17. BISOPROLOL [Suspect]
     Active Substance: BISOPROLOL
     Indication: PRODUCT USED FOR UNKNOWN INDICATION
     Dosage: 2.5 MILLIGRAM
     Route: 065
  18. CYCLOBENZAPRINE. [Concomitant]
     Active Substance: CYCLOBENZAPRINE
     Indication: PRODUCT USED FOR UNKNOWN INDICATION
     Dosage: 10 MILLIGRAM
     Route: 065
  19. SANDOSTATIN LAR DEPOT [Suspect]
     Active Substance: OCTREOTIDE ACETATE
     Indication: VIPOMA
     Dosage: 30 MILLIGRAM, EVERY MONTH
     Route: 030
  20. JANUVIA [Concomitant]
     Active Substance: SITAGLIPTIN PHOSPHATE
     Dosage: 50 MILLIGRAM, ONCE A DAY
     Route: 048
  21. GLUCONORM [Concomitant]
     Indication: PRODUCT USED FOR UNKNOWN INDICATION
     Dosage: 1 MILLIGRAM, ONCE A DAY
     Route: 048

REACTIONS (34)
  - Constipation [Not Recovered/Not Resolved]
  - Muscular weakness [Not Recovered/Not Resolved]
  - Hypotension [Not Recovered/Not Resolved]
  - Drug intolerance [Not Recovered/Not Resolved]
  - Malignant neoplasm progression [Not Recovered/Not Resolved]
  - Blood glucose increased [Not Recovered/Not Resolved]
  - Gingival abscess [Not Recovered/Not Resolved]
  - Injection site pain [Not Recovered/Not Resolved]
  - Paraesthesia [Not Recovered/Not Resolved]
  - Renal disorder [Not Recovered/Not Resolved]
  - Stress [Not Recovered/Not Resolved]
  - Fatigue [Not Recovered/Not Resolved]
  - Flatulence [Not Recovered/Not Resolved]
  - Injection site hypersensitivity [Not Recovered/Not Resolved]
  - Face oedema [Not Recovered/Not Resolved]
  - Injection site mass [Not Recovered/Not Resolved]
  - Metastasis [Not Recovered/Not Resolved]
  - Pancreatic neuroendocrine tumour [Not Recovered/Not Resolved]
  - Intervertebral disc protrusion [Not Recovered/Not Resolved]
  - Abdominal distension [Not Recovered/Not Resolved]
  - Limb discomfort [Not Recovered/Not Resolved]
  - Blood pressure increased [Not Recovered/Not Resolved]
  - Abdominal pain [Not Recovered/Not Resolved]
  - Hypoglycaemia [Not Recovered/Not Resolved]
  - Injection site swelling [Not Recovered/Not Resolved]
  - Vipoma [Not Recovered/Not Resolved]
  - Yellow skin [Not Recovered/Not Resolved]
  - Alopecia [Not Recovered/Not Resolved]
  - Asthenia [Not Recovered/Not Resolved]
  - Faeces soft [Not Recovered/Not Resolved]
  - Heart rate decreased [Not Recovered/Not Resolved]
  - Musculoskeletal stiffness [Not Recovered/Not Resolved]
  - Pain in extremity [Not Recovered/Not Resolved]
  - Toxicity to various agents [Not Recovered/Not Resolved]
